FAERS Safety Report 5274709-4 (Version None)
Quarter: 2007Q1

REPORT INFORMATION
  Report Type: 
  Country: None (occurrence: None)
  Receive Date: 20070320
  Receipt Date: 20070314
  Transmission Date: 20070707
  Serious: Yes (Hospitalization)
  Sender: FDA-Public Use
  Company Number: 13692330

PATIENT
  Sex: Female
  Weight: 83.9 kg

DRUGS (5)
  1. EMSAM [Suspect]
     Indication: DEPRESSION
     Dosage: 9 MILLIGRAM, 24 HOUR
  2. SYNTHROID [Concomitant]
  3. ZETIA [Concomitant]
  4. MOTRIN [Concomitant]
  5. GEODON [Concomitant]

REACTIONS (6)
  - GENERALISED ERYTHEMA [None]
  - INSOMNIA [None]
  - MIGRAINE [None]
  - PRURITUS GENERALISED [None]
  - TRANSIENT ISCHAEMIC ATTACK [None]
  - VISUAL ACUITY REDUCED [None]
